FAERS Safety Report 7382019-4 (Version None)
Quarter: 2011Q1

REPORT INFORMATION
  Report Type: 
  Country: None (occurrence: None)
  Receive Date: 20110329
  Receipt Date: 20110322
  Transmission Date: 20110831
  Serious: Yes (Other)
  Sender: FDA-Public Use
  Company Number: US-PFIZER INC-2011028448

PATIENT
  Sex: Female
  Weight: 63.946 kg

DRUGS (4)
  1. CHANTIX [Suspect]
     Dosage: 1 DF, 2X/DAY
     Route: 048
     Dates: start: 20110101, end: 20110208
  2. LORATADINE [Concomitant]
     Dosage: 10 MG, UNK
  3. CHANTIX [Suspect]
     Indication: SMOKING CESSATION THERAPY
     Dosage: 0.5 MG, 1X/DAY
     Route: 048
     Dates: start: 20110128, end: 20110101
  4. FLONASE [Concomitant]
     Dosage: 2 SPRAYS DAILY

REACTIONS (6)
  - DYSFUNCTIONAL UTERINE BLEEDING [None]
  - OVARIAN CYST [None]
  - FLUID RETENTION [None]
  - COUGH [None]
  - WEIGHT INCREASED [None]
  - ALLERGIC SINUSITIS [None]
